FAERS Safety Report 4594950-3 (Version None)
Quarter: 2005Q1

REPORT INFORMATION
  Report Type: 
  Country: None (occurrence: None)
  Receive Date: 20050223
  Receipt Date: 20050210
  Transmission Date: 20050727
  Serious: Yes (Other)
  Sender: FDA-Public Use
  Company Number: 2005026437

PATIENT
  Sex: Female
  Weight: 55 kg

DRUGS (2)
  1. CLINDAMYCIN HYDROCHLORIDE [Suspect]
     Indication: SINUSITIS
     Dosage: 1200 MG (300 MG, QID), ORAL
     Route: 048
     Dates: start: 20050202
  2. CONTRACEPTIVE UNSPECIFIED [Concomitant]

REACTIONS (2)
  - ANGIONEUROTIC OEDEMA [None]
  - PHARYNGEAL OEDEMA [None]
